FAERS Safety Report 6611320-4 (Version None)
Quarter: 2010Q1

REPORT INFORMATION
  Report Type: 
  Country: None (occurrence: None)
  Receive Date: 20100303
  Receipt Date: 20100222
  Transmission Date: 20100710
  Serious: Yes (Hospitalization)
  Sender: FDA-Public Use
  Company Number: US-NAPPMUNDI-USA-2010-0042351

PATIENT
  Sex: Male
  Weight: 90.703 kg

DRUGS (18)
  1. MS CONTIN [Suspect]
     Indication: PAIN
     Dosage: 15 MG, TID
     Dates: start: 20080305
  2. BLINDED THERAPY [Suspect]
     Indication: OSTEOARTHRITIS
     Dosage: UNK
     Dates: start: 20080121
  3. NEXIUM [Concomitant]
     Dosage: UNK
     Dates: start: 20010820
  4. DARVON [Concomitant]
     Dosage: UNK
     Dates: start: 19930106
  5. TRENTAL [Concomitant]
     Dosage: UNK
     Dates: start: 19950118
  6. TRAMADOL HCL [Concomitant]
     Dosage: UNK
     Dates: start: 19970415
  7. REGLAN [Concomitant]
     Dosage: UNK
     Dates: start: 19921209
  8. INDERAL                            /00030001/ [Concomitant]
     Dosage: UNK
     Dates: start: 19941213
  9. CRESTOR [Concomitant]
     Dosage: UNK
     Dates: start: 20040128
  10. ZOLOFT [Concomitant]
     Dosage: UNK
     Dates: start: 20031208
  11. LASIX [Concomitant]
     Dosage: UNK
     Dates: start: 20030815
  12. ASPIRIN [Concomitant]
     Dosage: UNK
     Dates: start: 19930101
  13. LOTREL [Concomitant]
     Dosage: UNK
     Dates: start: 20030802
  14. FOSAMAX [Concomitant]
     Dosage: UNK
     Dates: start: 20040512
  15. FEXMID [Concomitant]
     Dosage: UNK
     Dates: start: 20080206
  16. OXYGEN [Concomitant]
     Dosage: UNK
     Dates: start: 20080517
  17. MSIR CAPSULES [Concomitant]
     Dosage: UNK
     Dates: start: 20080305
  18. DEPAKOTE [Concomitant]
     Dosage: UNK
     Dates: start: 20080527

REACTIONS (1)
  - MUSCULOSKELETAL CHEST PAIN [None]
